FAERS Safety Report 17830630 (Version 1)
Quarter: 2020Q2

REPORT INFORMATION
  Report Type: Spontaneous
  Country: US (occurrence: US)
  Receive Date: 20200527
  Receipt Date: 20200527
  Transmission Date: 20200714
  Serious: No
  Sender: FDA-Public Use
  Company Number: US-PFIZER INC-2020043900

PATIENT
  Age: 18 Year
  Sex: Female
  Weight: 78 kg

DRUGS (2)
  1. PHOSPHOLINE IODIDE [Suspect]
     Active Substance: ECHOTHIOPHATE IODIDE
     Indication: STRABISMUS
     Dosage: UNK (0.125% OR 5ML IS WHAT SHE THINKS WAS ON THE BOX 1 DROP IN EACH EYE AT NIGHT)
     Route: 031
     Dates: end: 201911
  2. PHOSPHOLINE IODIDE [Suspect]
     Active Substance: ECHOTHIOPHATE IODIDE
     Indication: EYE DISORDER

REACTIONS (2)
  - Off label use [Unknown]
  - Product use in unapproved indication [Unknown]
